FAERS Safety Report 6787660-5 (Version None)
Quarter: 2010Q2

REPORT INFORMATION
  Report Type: 
  Country: None (occurrence: None)
  Receive Date: 20100623
  Receipt Date: 20040511
  Transmission Date: 20101027
  Serious: Yes (Other)
  Sender: FDA-Public Use
  Company Number: US-PFIZER INC-2007058645

PATIENT
  Sex: Female

DRUGS (1)
  1. CALAN [Suspect]

REACTIONS (6)
  - DRY MOUTH [None]
  - HYPERSENSITIVITY [None]
  - OEDEMA MOUTH [None]
  - PARAESTHESIA ORAL [None]
  - SWELLING FACE [None]
  - SWOLLEN TONGUE [None]
